FAERS Safety Report 9050544 (Version 1)
Quarter: 2013Q1

REPORT INFORMATION
  Report Type: Spontaneous
  Country: US (occurrence: US)
  Receive Date: 20130205
  Receipt Date: 20130205
  Transmission Date: 20140127
  Serious: Yes (Other)
  Sender: FDA-Public Use
  Company Number: US-ELI_LILLY_AND_COMPANY-US201301010253

PATIENT
  Age: 55 Year
  Sex: Male

DRUGS (4)
  1. EFFIENT [Suspect]
     Indication: STENT PLACEMENT
     Dosage: UNK
  2. HEPARIN [Concomitant]
  3. ANGIOMAX [Concomitant]
  4. ASA [Concomitant]

REACTIONS (1)
  - Thrombosis in device [Unknown]
